FAERS Safety Report 10012782 (Version 2)
Quarter: 2014Q1

REPORT INFORMATION
  Report Type: Spontaneous
  Country: US (occurrence: US)
  Receive Date: 20140314
  Receipt Date: 20140318
  Transmission Date: 20141002
  Serious: Yes (Other)
  Sender: FDA-Public Use
  Company Number: CHPA2014US003792

PATIENT
  Age: 49 Year
  Sex: Male

DRUGS (6)
  1. VOLTAREN GEL [Suspect]
     Indication: FLUID RETENTION
     Dosage: UNK
     Route: 061
     Dates: end: 2011
  2. VOLTAREN GEL [Suspect]
     Indication: OFF LABEL USE
     Dosage: UNK
     Route: 061
     Dates: start: 20140309
  3. VOLTAREN GEL [Suspect]
     Indication: ARTHRALGIA
  4. VOLTAREN GEL [Suspect]
     Indication: OFF LABEL USE
  5. TRAMADOL [Concomitant]
     Dosage: UNK
     Route: 065
     Dates: start: 2010
  6. HYDROCODONE [Concomitant]
     Dosage: UNK
     Route: 065
     Dates: start: 201402

REACTIONS (6)
  - Abasia [Recovered/Resolved]
  - Fall [Recovered/Resolved]
  - Arthralgia [Recovering/Resolving]
  - Fluid retention [Not Recovered/Not Resolved]
  - Therapeutic response unexpected [Unknown]
  - Expired drug administered [Unknown]
